FAERS Safety Report 4654826-X (Version None)
Quarter: 2005Q2

REPORT INFORMATION
  Report Type: 
  Country: None (occurrence: None)
  Receive Date: 20050506
  Receipt Date: 20050502
  Transmission Date: 20051028
  Serious: Yes (Other)
  Sender: FDA-Public Use
  Company Number: US-BRISTOL-MYERS SQUIBB COMPANY-12955928

PATIENT
  Age: 38 Year
  Sex: Male

DRUGS (5)
  1. ATAZANAVIR [Suspect]
     Indication: HIV INFECTION
     Dosage: INTERRUPTED 02-MAY-2005
     Route: 048
     Dates: start: 20040602
  2. SUSTIVA [Suspect]
     Indication: HIV INFECTION
     Dosage: INTERRUPTED 02-MAY-2005
     Route: 048
     Dates: start: 20040602
  3. NORVIR [Suspect]
     Indication: HIV INFECTION
     Dosage: INTERRUPTED 02-MAY-2005
     Route: 048
     Dates: start: 20040602
  4. VALTREX [Concomitant]
     Dates: start: 20040405
  5. MULTI-VITAMIN [Concomitant]
     Dates: start: 20040301

REACTIONS (1)
  - RHABDOMYOLYSIS [None]
